FAERS Safety Report 5280034-8 (Version None)
Quarter: 2007Q1

REPORT INFORMATION
  Report Type: 
  Country: None (occurrence: None)
  Receive Date: 20070329
  Receipt Date: 20070322
  Transmission Date: 20070707
  Serious: Yes (Other)
  Sender: FDA-Public Use
  Company Number: US-BAYER-200616940BWH

PATIENT
  Age: 83 Year
  Sex: Male

DRUGS (12)
  1. NEXAVAR [Suspect]
     Indication: RENAL CELL CARCINOMA STAGE UNSPECIFIED
     Dosage: TOTAL DAILY DOSE: 800 MG  UNIT DOSE: 200 MG
     Route: 048
     Dates: start: 20070215
  2. NEXAVAR [Suspect]
     Dosage: TOTAL DAILY DOSE: 800 MG  UNIT DOSE: 200 MG
     Route: 048
     Dates: start: 20061130, end: 20061212
  3. NEXAVAR [Suspect]
     Dosage: AS USED: 400/200 MG  UNIT DOSE: 200 MG
     Route: 048
     Dates: end: 20070215
  4. NEXAVAR [Suspect]
     Dosage: TOTAL DAILY DOSE: 400 MG  UNIT DOSE: 200 MG
     Route: 048
     Dates: start: 20061226
  5. TOPROL-XL [Concomitant]
     Dosage: TOTAL DAILY DOSE: 400 MG
     Route: 048
  6. TOPROL-XL [Concomitant]
  7. COUMADIN [Concomitant]
  8. DIGOXIN [Concomitant]
     Route: 048
  9. TERAZOSIN HCL [Concomitant]
     Dosage: TOTAL DAILY DOSE: 10 MG
     Route: 048
  10. ATROVENT [Concomitant]
     Dosage: TOTAL DAILY DOSE: 8 PUFF
     Route: 048
  11. HYTRIN [Concomitant]
  12. ASPIRIN [Concomitant]

REACTIONS (16)
  - BALANITIS [None]
  - COUGH [None]
  - DIARRHOEA [None]
  - DRY MOUTH [None]
  - FATIGUE [None]
  - GASTROINTESTINAL INFECTION [None]
  - HAEMORRHAGE [None]
  - INFLAMMATION [None]
  - ORAL PAIN [None]
  - PENILE PAIN [None]
  - PENILE SWELLING [None]
  - PENIS DISORDER [None]
  - SKIN DISORDER [None]
  - SKIN EXFOLIATION [None]
  - SKIN FISSURES [None]
  - WEIGHT DECREASED [None]
